FAERS Safety Report 11154748 (Version 3)
Quarter: 2017Q4

REPORT INFORMATION
  Report Type: Report from Study
  Country: KR (occurrence: KR)
  Receive Date: 20150602
  Receipt Date: 20171004
  Transmission Date: 20180320
  Serious: Yes (Hospitalization)
  Sender: FDA-Public Use
  Company Number: KR-ROCHE-1582263

PATIENT
  Age: 72 Year
  Sex: Female

DRUGS (33)
  1. DENOGAN [Concomitant]
     Active Substance: PROPACETAMOL HYDROCHLORIDE
     Indication: PYREXIA
     Route: 065
     Dates: start: 20150522, end: 20150522
  2. LANSTON [Concomitant]
     Active Substance: LANSOPRAZOLE
     Route: 065
     Dates: start: 20150524
  3. TAZOPERAN [Concomitant]
     Indication: INFECTION PROPHYLAXIS
     Route: 065
     Dates: start: 20150522, end: 20150525
  4. WINUF PERI [Concomitant]
     Indication: DECREASED APPETITE
     Route: 065
     Dates: start: 20150521, end: 20150523
  5. DISGREN (SOUTH KOREA) [Concomitant]
     Indication: PROPHYLAXIS
     Route: 065
     Dates: start: 2005
  6. AVELOX [Concomitant]
     Active Substance: MOXIFLOXACIN HYDROCHLORIDE
     Route: 065
     Dates: start: 20150526, end: 20150602
  7. MUCOSTEN [Concomitant]
     Route: 065
     Dates: start: 20150523, end: 20150523
  8. NASONEX [Concomitant]
     Active Substance: MOMETASONE FUROATE
     Indication: RHINORRHOEA
     Route: 065
     Dates: start: 20130110
  9. ATROVENT UDV [Concomitant]
     Active Substance: IPRATROPIUM BROMIDE
     Route: 065
     Dates: start: 20150522, end: 20150526
  10. CACL2 [Concomitant]
     Indication: HYPOCALCAEMIA
     Route: 065
     Dates: start: 20150524, end: 20150524
  11. CODEINE [Concomitant]
     Active Substance: CODEINE
     Route: 065
     Dates: start: 20150524, end: 20150526
  12. MUCOSTA [Concomitant]
     Active Substance: REBAMIPIDE
     Route: 065
     Dates: start: 20150524, end: 20150526
  13. POFOL [Concomitant]
     Indication: MEDICAL PROCEDURE
     Route: 065
     Dates: start: 20150526, end: 20150526
  14. HEPARIN [Concomitant]
     Active Substance: HEPARIN SODIUM
     Route: 065
     Dates: start: 20110923
  15. MOKTIN [Concomitant]
     Indication: INFECTION PROPHYLAXIS
     Route: 065
     Dates: start: 20150524, end: 20150524
  16. SYNTHROID [Concomitant]
     Active Substance: LEVOTHYROXINE SODIUM
     Indication: PROPHYLAXIS
     Route: 065
     Dates: start: 2005
  17. ALGIRON [Concomitant]
     Active Substance: CIMETROPIUM BROMIDE
     Indication: MEDICAL PROCEDURE
     Route: 065
     Dates: start: 20150523, end: 20150523
  18. BISOLVON [Concomitant]
     Active Substance: BROMHEXINE HYDROCHLORIDE
     Route: 065
     Dates: start: 20150524, end: 20150526
  19. LIDOCAINE. [Concomitant]
     Active Substance: LIDOCAINE
     Indication: MEDICAL PROCEDURE
     Route: 065
     Dates: start: 20150526, end: 20150526
  20. PENIRAMIN [Concomitant]
     Route: 065
     Dates: start: 20150521, end: 20150523
  21. TRASTUZUMAB EMTANSINE [Suspect]
     Active Substance: ADO-TRASTUZUMAB EMTANSINE
     Indication: HER-2 POSITIVE BREAST CANCER
     Dosage: MOST RECENT DOSE TAKEN: 169 MG?DATE OF MOST RECENT DOSE PRIOR TO EVENT WAS ON 07/MAY/2015
     Route: 042
     Dates: start: 20150122
  22. COZAAR PLUS [Concomitant]
     Active Substance: HYDROCHLOROTHIAZIDE\LOSARTAN POTASSIUM
     Indication: PROPHYLAXIS
     Route: 065
     Dates: start: 2000
  23. URSA [Concomitant]
     Indication: ASPARTATE AMINOTRANSFERASE INCREASED
     Route: 065
     Dates: start: 20131120
  24. XYZAL [Concomitant]
     Active Substance: LEVOCETIRIZINE DIHYDROCHLORIDE
     Indication: RHINORRHOEA
     Route: 065
     Dates: start: 20130110
  25. TANTUM (BENZYDAMINE HYDROCHLORIDE) [Concomitant]
     Indication: MUCOSAL INFLAMMATION
     Route: 065
     Dates: start: 20130126
  26. BUSCOPAN [Concomitant]
     Active Substance: BUTYLSCOPOLAMINE BROMIDE
     Route: 065
     Dates: start: 20150521, end: 20150521
  27. GASOCOL [Concomitant]
     Indication: MEDICAL PROCEDURE
     Route: 065
     Dates: start: 20150523, end: 20150523
  28. NEXIUM [Concomitant]
     Active Substance: ESOMEPRAZOLE MAGNESIUM
     Route: 065
     Dates: start: 20150521, end: 20150523
  29. NORPINE [Concomitant]
     Indication: MEDICAL PROCEDURE
     Route: 065
     Dates: start: 20150521, end: 20150523
  30. STILNOX [Concomitant]
     Active Substance: ZOLPIDEM TARTRATE
     Indication: INSOMNIA
     Route: 065
     Dates: start: 20130315
  31. TYLENOL [Concomitant]
     Active Substance: ACETAMINOPHEN
     Indication: PROPHYLAXIS
     Route: 065
     Dates: start: 20131120
  32. CORTISOLU [Concomitant]
     Active Substance: HYDROCORTISONE SODIUM SUCCINATE
     Route: 065
     Dates: start: 20150522, end: 20150525
  33. ULCERLMIN [Concomitant]
     Active Substance: SUCRALFATE
     Route: 065
     Dates: start: 20150524, end: 20150526

REACTIONS (1)
  - Gastric ulcer [Recovered/Resolved]

NARRATIVE: CASE EVENT DATE: 20150521
